FAERS Safety Report 10479404 (Version 1)
Quarter: 2014Q3

REPORT INFORMATION
  Report Type: Spontaneous
  Country: FR (occurrence: FR)
  Receive Date: 20140926
  Receipt Date: 20140926
  Transmission Date: 20150326
  Serious: Yes (Hospitalization)
  Sender: FDA-Public Use
  Company Number: FR-ASTRAZENECA-2014SE70371

PATIENT
  Age: 20664 Day
  Sex: Male

DRUGS (3)
  1. KETEK [Concomitant]
     Active Substance: TELITHROMYCIN
     Route: 048
     Dates: start: 20130909, end: 20130913
  2. ADVIL [Suspect]
     Active Substance: IBUPROFEN
     Route: 048
     Dates: start: 20130901, end: 20130908
  3. SYMBICORT [Suspect]
     Active Substance: BUDESONIDE\FORMOTEROL FUMARATE DIHYDRATE
     Route: 055
     Dates: start: 20130909

REACTIONS (4)
  - Pneumonia [Recovered/Resolved]
  - Pericardial effusion [Recovering/Resolving]
  - Viral pericarditis [Unknown]
  - Brugada syndrome [Unknown]

NARRATIVE: CASE EVENT DATE: 20130910
